FAERS Safety Report 10406663 (Version 3)
Quarter: 2014Q4

REPORT INFORMATION
  Report Type: Report from Study
  Country: ES (occurrence: ES)
  Receive Date: 20140825
  Receipt Date: 20141024
  Transmission Date: 20150528
  Serious: Yes (Other)
  Sender: FDA-Public Use
  Company Number: ES-VERTEX PHARMACEUTICALS (CANADA)-2014-003536

PATIENT

DRUGS (3)
  1. TELAPREVIR [Suspect]
     Active Substance: TELAPREVIR
     Indication: HEPATITIS C
     Route: 048
  2. RIBAVIRIN. [Suspect]
     Active Substance: RIBAVIRIN
     Indication: HEPATITIS C
     Dosage: UNK
     Route: 065
  3. PEGYLATED INTERFERON NOS [Suspect]
     Active Substance: PEGINTERFERON ALFA-2A OR PEGINTERFERON ALFA-2B OR PEGINTERFERON BETA-1A OR PEGINTERFERON LAMBDA-1A
     Indication: HEPATITIS C
     Dosage: UNK
     Route: 065

REACTIONS (28)
  - Thrombocytopenia [Unknown]
  - Nausea [Unknown]
  - Alopecia [Unknown]
  - Pruritus [Unknown]
  - Hyperthyroidism [Unknown]
  - Decreased appetite [Unknown]
  - Dyspepsia [Unknown]
  - Aphthous stomatitis [Unknown]
  - Diarrhoea [Unknown]
  - Cough [Unknown]
  - Vision blurred [Unknown]
  - Hepatitis C [Unknown]
  - Depression [Unknown]
  - Dizziness [Unknown]
  - Abdominal pain upper [Unknown]
  - Irritability [Unknown]
  - Leukopenia [Unknown]
  - Asthenia [Unknown]
  - Anaemia [Unknown]
  - Insomnia [Unknown]
  - Pyrexia [Unknown]
  - Anorectal disorder [Unknown]
  - Dysgeusia [Unknown]
  - Rash [Unknown]
  - Puncture site erythema [Unknown]
  - Dyspnoea [Unknown]
  - Peau d^orange [Unknown]
  - Influenza [Unknown]
